FAERS Safety Report 23675687 (Version 2)
Quarter: 2025Q1

REPORT INFORMATION
  Report Type: Spontaneous
  Country: US (occurrence: US)
  Receive Date: 20240327
  Receipt Date: 20250324
  Transmission Date: 20250409
  Serious: No
  Sender: SANOFI AVENTIS
  Company Number: US-SA-SAC20240319000875

PATIENT
  Age: 60 Year
  Sex: Male
  Weight: 72.73 kg

DRUGS (5)
  1. AUBAGIO [Suspect]
     Active Substance: TERIFLUNOMIDE
     Indication: Multiple sclerosis
     Dosage: 14 MG, QD
     Route: 048
     Dates: start: 20181219, end: 20250313
  2. Trazon [Concomitant]
     Dates: start: 20211122
  3. LIPITOR [Concomitant]
     Active Substance: ATORVASTATIN CALCIUM
     Dates: start: 20200713
  4. ZOLOFT [Concomitant]
     Active Substance: SERTRALINE HYDROCHLORIDE
     Dates: start: 20200713
  5. ASPIRIN [Concomitant]
     Active Substance: ASPIRIN
     Dates: start: 20200713

REACTIONS (1)
  - Blood cholesterol increased [Unknown]
